FAERS Safety Report 16614504 (Version 1)
Quarter: 2019Q3

REPORT INFORMATION
  Report Type: Spontaneous
  Country: US (occurrence: US)
  Receive Date: 20190723
  Receipt Date: 20190723
  Transmission Date: 20191004
  Serious: No
  Sender: FDA-Public Use
  Company Number: US-PFIZER INC-2019312060

PATIENT

DRUGS (1)
  1. PROCARDIA XL [Suspect]
     Active Substance: NIFEDIPINE
     Dosage: UNK

REACTIONS (3)
  - Gait disturbance [Unknown]
  - Dyslexia [Unknown]
  - Drug ineffective [Unknown]
